FAERS Safety Report 17261017 (Version 3)
Quarter: 2020Q3

REPORT INFORMATION
  Report Type: Spontaneous
  Country: US (occurrence: US)
  Receive Date: 20200113
  Receipt Date: 20200825
  Transmission Date: 20201102
  Serious: Yes (Hospitalization, Other)
  Sender: FDA-Public Use
  Company Number: US-GILEAD-2020-0445884

PATIENT
  Age: 53 Year
  Sex: Male
  Weight: 63.49 kg

DRUGS (32)
  1. CRESTOR [Concomitant]
     Active Substance: ROSUVASTATIN CALCIUM
  2. PROTONIX [Concomitant]
     Active Substance: PANTOPRAZOLE SODIUM
  3. LIPITOR [Concomitant]
     Active Substance: ATORVASTATIN CALCIUM
  4. EMTRIVA [Concomitant]
     Active Substance: EMTRICITABINE
     Dosage: UNK
     Dates: start: 20170905
  5. ASPIRIN [ACETYLSALICYLIC ACID] [Concomitant]
     Active Substance: ASPIRIN
  6. BACTRIM [Concomitant]
     Active Substance: SULFAMETHOXAZOLE\TRIMETHOPRIM
  7. TACROLIMUS. [Concomitant]
     Active Substance: TACROLIMUS
  8. CRIXIVAN [Concomitant]
     Active Substance: INDINAVIR SULFATE
  9. EPIVIR [Concomitant]
     Active Substance: LAMIVUDINE
  10. SUSTIVA [Concomitant]
     Active Substance: EFAVIRENZ
  11. FLOMAX [Concomitant]
     Active Substance: TAMSULOSIN HYDROCHLORIDE
  12. VIREAD [Suspect]
     Active Substance: TENOFOVIR DISOPROXIL FUMARATE
     Indication: HIV INFECTION
     Dosage: UNK
     Route: 048
     Dates: start: 2010, end: 2018
  13. LOPRESSOR [Concomitant]
     Active Substance: METOPROLOL TARTRATE
  14. HEPARIN [Concomitant]
     Active Substance: HEPARIN SODIUM
  15. GLUCOTROL [Concomitant]
     Active Substance: GLIPIZIDE
  16. ACETAMINOPHEN. [Concomitant]
     Active Substance: ACETAMINOPHEN
  17. TYLENOL [Concomitant]
     Active Substance: ACETAMINOPHEN
  18. LASIX [Concomitant]
     Active Substance: FUROSEMIDE
  19. PREDNISOLONE. [Concomitant]
     Active Substance: PREDNISOLONE
  20. COMBIVIR [Concomitant]
     Active Substance: LAMIVUDINE\ZIDOVUDINE
  21. INTELENCE [Concomitant]
     Active Substance: ETRAVIRINE
  22. NORVIR [Concomitant]
     Active Substance: RITONAVIR
  23. ZITHROMAX [Concomitant]
     Active Substance: AZITHROMYCIN DIHYDRATE
  24. ISENTRESS [Concomitant]
     Active Substance: RALTEGRAVIR POTASSIUM
  25. KALETRA [Concomitant]
     Active Substance: LOPINAVIR\RITONAVIR
  26. VIREAD [Suspect]
     Active Substance: TENOFOVIR DISOPROXIL FUMARATE
     Dosage: UNK
     Route: 048
     Dates: start: 2003, end: 2008
  27. PREZISTA [Concomitant]
     Active Substance: DARUNAVIR ETHANOLATE
  28. RETROVIR [Concomitant]
     Active Substance: ZIDOVUDINE
  29. ANDROGEL [Concomitant]
     Active Substance: TESTOSTERONE
  30. ZERIT [Concomitant]
     Active Substance: STAVUDINE
  31. VIRAMUNE [Concomitant]
     Active Substance: NEVIRAPINE
  32. NITROGLYCERIN. [Concomitant]
     Active Substance: NITROGLYCERIN

REACTIONS (19)
  - Renal arteriosclerosis [Not Recovered/Not Resolved]
  - Vitamin D decreased [Unknown]
  - Anxiety [Not Recovered/Not Resolved]
  - Pain [Not Recovered/Not Resolved]
  - Hip arthroplasty [Unknown]
  - Intervertebral disc degeneration [Not Recovered/Not Resolved]
  - Nephrolithiasis [Unknown]
  - Renal transplant [Unknown]
  - Back injury [Unknown]
  - Hyperparathyroidism [Not Recovered/Not Resolved]
  - Renal failure [Unknown]
  - Anhedonia [Not Recovered/Not Resolved]
  - Chronic kidney disease [Unknown]
  - Bone density decreased [Not Recovered/Not Resolved]
  - Emotional distress [Not Recovered/Not Resolved]
  - Osteopenia [Not Recovered/Not Resolved]
  - End stage renal disease [Not Recovered/Not Resolved]
  - Osteoarthritis [Not Recovered/Not Resolved]
  - Economic problem [Not Recovered/Not Resolved]

NARRATIVE: CASE EVENT DATE: 1989
